FAERS Safety Report 7603388-3 (Version None)
Quarter: 2011Q3

REPORT INFORMATION
  Report Type: 
  Country: None (occurrence: None)
  Receive Date: 20110712
  Receipt Date: 20110707
  Transmission Date: 20111222
  Serious: Yes (Death, Hospitalization, Disabling, Other)
  Sender: FDA-Public Use
  Company Number: PHHO2010JP19982

PATIENT
  Sex: Male
  Weight: 49 kg

DRUGS (22)
  1. FUROSEMIDE [Concomitant]
     Dosage: 20 MG, UNK
     Route: 048
  2. ENALAPRIL MALEATE [Suspect]
     Indication: CARDIAC FAILURE
     Dosage: 10 MG, UNK
     Route: 048
     Dates: start: 20091223, end: 20100118
  3. ASPIRIN [Concomitant]
     Indication: ARTERIOSCLEROSIS OBLITERANS
     Dosage: 100 MG, UNK
     Route: 048
     Dates: start: 20110209
  4. ALLOPURINOL [Concomitant]
     Indication: HYPERURICAEMIA
     Dosage: UNK
     Dates: start: 20110330, end: 20110401
  5. VITAMEDIN CAPSULE [Concomitant]
  6. ALISKIREN [Suspect]
     Dosage: 150 MG, UNK
     Route: 048
     Dates: start: 20100216
  7. SENNOSIDE [Concomitant]
     Dosage: 12 MG, UNK
     Route: 048
  8. ACYCLOVIR [Concomitant]
  9. SENNOSIDE [Concomitant]
     Dosage: 24 MG, UNK
     Route: 048
  10. ARASENA A [Concomitant]
     Dosage: UNK
  11. MS REISHIPPU ASTRA [Concomitant]
  12. CARVEDILOL [Concomitant]
     Indication: HYPERTENSION
     Dosage: 10 MG, UNK
     Route: 048
     Dates: start: 20090323
  13. ALISKIREN [Suspect]
     Indication: CARDIAC FAILURE
     Dosage: UNK
     Route: 048
     Dates: start: 20100309, end: 20101229
  14. SENNOSIDE [Concomitant]
     Dosage: 12 MG, UNK
     Route: 048
  15. FUROSEMIDE [Concomitant]
     Indication: CARDIAC FAILURE CONGESTIVE
     Dosage: 40 MG, UNK
     Route: 048
     Dates: start: 20090709, end: 20110111
  16. WARFARIN POTASSIUM [Concomitant]
     Dosage: UNK
     Dates: start: 19991117, end: 20110208
  17. SIGMART [Concomitant]
     Dosage: UNK
     Dates: start: 20060420
  18. CARVEDILOL [Concomitant]
     Dosage: UNK
     Dates: start: 20090323
  19. PIROLACTONE [Concomitant]
     Indication: CARDIAC FAILURE CONGESTIVE
     Dosage: 25 MG, UNK
     Route: 048
     Dates: start: 20091106
  20. ENALAPRIL MALEATE [Suspect]
     Dosage: 20 MG, UNK
     Route: 048
     Dates: start: 20100119, end: 20100215
  21. SENNOSIDE [Concomitant]
     Indication: CONSTIPATION
     Dosage: 24 MG, UNK
     Route: 048
     Dates: start: 20100730
  22. FELBINAC [Concomitant]

REACTIONS (30)
  - OEDEMA PERIPHERAL [None]
  - ABDOMINAL PAIN [None]
  - PROSTATE CANCER [None]
  - CONSTIPATION [None]
  - CARDIAC FAILURE ACUTE [None]
  - DEHYDRATION [None]
  - HYPOPHAGIA [None]
  - ROTATOR CUFF SYNDROME [None]
  - BONE ATROPHY [None]
  - EYELID OEDEMA [None]
  - ABDOMINAL PAIN LOWER [None]
  - RENAL IMPAIRMENT [None]
  - DECREASED APPETITE [None]
  - JOINT SWELLING [None]
  - BURNING SENSATION [None]
  - ANAEMIA [None]
  - ABDOMINAL DISCOMFORT [None]
  - CHEST PAIN [None]
  - METASTASES TO BONE MARROW [None]
  - OCULAR ICTERUS [None]
  - CHOLELITHIASIS [None]
  - SWELLING [None]
  - FACE OEDEMA [None]
  - PALLOR [None]
  - ABDOMINAL PAIN UPPER [None]
  - ANKLE FRACTURE [None]
  - ABDOMINAL DISTENSION [None]
  - MALAISE [None]
  - HYPOTENSION [None]
  - MUSCULOSKELETAL PAIN [None]
